FAERS Safety Report 5379653-X (Version None)
Quarter: 2007Q3

REPORT INFORMATION
  Report Type: 
  Country: None (occurrence: None)
  Receive Date: 20070706
  Receipt Date: 20070626
  Transmission Date: 20080115
  Serious: Yes (Hospitalization)
  Sender: FDA-Public Use
  Company Number: PHBS2007JP10822

PATIENT
  Sex: Female

DRUGS (1)
  1. TOFRANIL [Suspect]
     Route: 048

REACTIONS (3)
  - ELECTROCARDIOGRAM ABNORMAL [None]
  - INTENTIONAL OVERDOSE [None]
  - SUICIDE ATTEMPT [None]
